FAERS Safety Report 6053601-1 (Version None)
Quarter: 2009Q1

REPORT INFORMATION
  Report Type: 
  Country: None (occurrence: None)
  Receive Date: 20090127
  Receipt Date: 20080201
  Transmission Date: 20090719
  Serious: Yes (Hospitalization)
  Sender: FDA-Public Use
  Company Number: US-TEVA-158968USA

PATIENT
  Sex: Female

DRUGS (2)
  1. COPAXONE [Suspect]
     Indication: MULTIPLE SCLEROSIS
     Route: 058
     Dates: start: 20060908
  2. ACETAMINOPHEN [Suspect]

REACTIONS (3)
  - DEPRESSION [None]
  - OVERDOSE [None]
  - UNRESPONSIVE TO STIMULI [None]
